FAERS Safety Report 16825951 (Version 1)
Quarter: 2019Q3

REPORT INFORMATION
  Report Type: Spontaneous
  Country: CA (occurrence: CA)
  Receive Date: 20190919
  Receipt Date: 20190919
  Transmission Date: 20191005
  Serious: Yes (Life-Threatening, Hospitalization, Disabling, Other)
  Sender: FDA-Public Use
  Company Number: CA-AUROBINDO-AUR-APL-2019-059437

PATIENT
  Age: 45 Year
  Sex: Male
  Weight: 125 kg

DRUGS (1)
  1. CITALOPRAM [Suspect]
     Active Substance: CITALOPRAM HYDROBROMIDE
     Indication: PRODUCT USED FOR UNKNOWN INDICATION
     Dosage: 60 MILLIGRAM, DAILY
     Route: 065

REACTIONS (4)
  - Loss of consciousness [Recovered/Resolved]
  - Cardiac disorder [Recovered/Resolved]
  - Seizure [Recovered/Resolved]
  - Syncope [Recovered/Resolved]
